FAERS Safety Report 8369399-8 (Version None)
Quarter: 2012Q2

REPORT INFORMATION
  Report Type: 
  Country: None (occurrence: None)
  Receive Date: 20120518
  Receipt Date: 20120511
  Transmission Date: 20120825
  Serious: Yes (Other)
  Sender: FDA-Public Use
  Company Number: US-TEVA-337814USA

PATIENT
  Age: 27 Month
  Sex: Female
  Weight: 9.534 kg

DRUGS (1)
  1. CEFDINIR [Suspect]
     Indication: SINUSITIS

REACTIONS (5)
  - PAIN [None]
  - THROAT IRRITATION [None]
  - DRUG PRESCRIBING ERROR [None]
  - DECREASED APPETITE [None]
  - OVERDOSE [None]
